FAERS Safety Report 5728690-1 (Version None)
Quarter: 2008Q2

REPORT INFORMATION
  Report Type: 
  Country: None (occurrence: None)
  Receive Date: 20080430
  Receipt Date: 20080414
  Transmission Date: 20081010
  Serious: Yes (Death)
  Sender: FDA-Public Use
  Company Number: 2008JP001916

PATIENT
  Age: 17 Year
  Sex: Male

DRUGS (2)
  1. FUNGUARD(MICAFUNGIN) FUNGUARD(MICAFUNGIN) INJECTION [Suspect]
  2. FLUCONAZOLE [Concomitant]

REACTIONS (2)
  - SEPSIS [None]
  - TRICHOSPORON INFECTION [None]
